FAERS Safety Report 9649243 (Version 6)
Quarter: 2014Q1

REPORT INFORMATION
  Report Type: Spontaneous
  Country: US (occurrence: US)
  Receive Date: 20131028
  Receipt Date: 20140124
  Transmission Date: 20141002
  Serious: Yes (Other)
  Sender: FDA-Public Use
  Company Number: US-GLAXOSMITHKLINE-A1044619A

PATIENT
  Age: 63 Year
  Sex: Male
  Weight: 106 kg

DRUGS (6)
  1. VOTRIENT [Suspect]
     Indication: RENAL CANCER
     Dosage: 800MG PER DAY
     Route: 048
     Dates: start: 20130903
  2. AMLODIPINE [Concomitant]
  3. ATORVASTATIN [Concomitant]
  4. FISH OIL [Concomitant]
  5. MULTIVITAMIN [Concomitant]
  6. TOPROL [Concomitant]

REACTIONS (17)
  - Rectal haemorrhage [Unknown]
  - Weight decreased [Unknown]
  - Decreased appetite [Unknown]
  - Dry skin [Unknown]
  - Nausea [Unknown]
  - Vomiting [Unknown]
  - Dysgeusia [Recovering/Resolving]
  - Skin fissures [Unknown]
  - Fatigue [Recovering/Resolving]
  - Blood pressure increased [Unknown]
  - Hair colour changes [Recovering/Resolving]
  - Lethargy [Recovering/Resolving]
  - Asthenia [Recovering/Resolving]
  - Blood test abnormal [Unknown]
  - Mucosal inflammation [Unknown]
  - Transaminases increased [Unknown]
  - Fluid retention [Unknown]
